FAERS Safety Report 13879219 (Version 2)
Quarter: 2017Q3

REPORT INFORMATION
  Report Type: Report from Study
  Country: US (occurrence: US)
  Receive Date: 20170817
  Receipt Date: 20170914
  Transmission Date: 20171127
  Serious: Yes (Death, Other)
  Sender: FDA-Public Use
  Company Number: US-GILEAD-2017-0289042

PATIENT
  Age: 72 Year
  Sex: Female
  Weight: 102 kg

DRUGS (1)
  1. AMBRISENTAN [Suspect]
     Active Substance: AMBRISENTAN
     Indication: PULMONARY ARTERIAL HYPERTENSION
     Dosage: 5 MG, QD
     Route: 065
     Dates: start: 20170620

REACTIONS (3)
  - Acute respiratory distress syndrome [Fatal]
  - Cardiogenic shock [Fatal]
  - Encephalopathy [Fatal]

NARRATIVE: CASE EVENT DATE: 20170807
